FAERS Safety Report 4938320-4 (Version None)
Quarter: 2006Q1

REPORT INFORMATION
  Report Type: 
  Country: None (occurrence: None)
  Receive Date: 20060309
  Receipt Date: 20060302
  Transmission Date: 20060701
  Serious: Yes (Death)
  Sender: FDA-Public Use
  Company Number: GR-GLAXOSMITHKLINE-B0414881A

PATIENT
  Age: 75 Year
  Sex: Male

DRUGS (1)
  1. TIMENTIN [Suspect]
     Indication: LOWER RESPIRATORY TRACT INFECTION
     Dosage: 5.2G SEE DOSAGE TEXT
     Route: 042
     Dates: start: 20060201, end: 20060201

REACTIONS (4)
  - BLOOD PRESSURE DECREASED [None]
  - DEATH [None]
  - LOSS OF CONSCIOUSNESS [None]
  - SYNCOPE [None]
